FAERS Safety Report 23640377 (Version 4)
Quarter: 2024Q3

REPORT INFORMATION
  Report Type: Spontaneous
  Country: JP (occurrence: JP)
  Receive Date: 20240317
  Receipt Date: 20240701
  Transmission Date: 20241016
  Serious: Yes (Hospitalization)
  Sender: AMGEN
  Company Number: JP-KISSEI-TV20240184_P_1

PATIENT
  Age: 67 Year
  Sex: Male
  Weight: 61 kg

DRUGS (8)
  1. TAVNEOS [Suspect]
     Active Substance: AVACOPAN
     Indication: Microscopic polyangiitis
     Dosage: 10 MILLIGRAM
     Route: 048
     Dates: start: 20230602, end: 20230810
  2. PREDNISOLONE [Concomitant]
     Active Substance: PREDNISOLONE
     Indication: Microscopic polyangiitis
     Dosage: 40 MILLIGRAM, QD
     Dates: start: 20230602
  3. RITUXIMAB [Concomitant]
     Active Substance: RITUXIMAB
     Indication: Microscopic polyangiitis
     Dosage: 500 MILLIGRAM, QD
     Route: 040
     Dates: start: 20230607, end: 2023
  4. SULFAMETHOXAZOLE\TRIMETHOPRIM [Concomitant]
     Active Substance: SULFAMETHOXAZOLE\TRIMETHOPRIM
     Indication: Anti-neutrophil cytoplasmic antibody positive vasculitis
     Dosage: 2 DOSAGE FORM, QD
     Route: 048
     Dates: start: 202305
  5. LOSARTAN POTASSIUM [Concomitant]
     Active Substance: LOSARTAN POTASSIUM
     Indication: Hypertension
     Dosage: 25 MILLIGRAM, QD
     Route: 048
  6. ALFACALCIDOL [Concomitant]
     Active Substance: ALFACALCIDOL
     Indication: Anti-neutrophil cytoplasmic antibody positive vasculitis
     Dosage: PERORAL MEDICINE
     Route: 048
     Dates: start: 202305
  7. FAMOTIDINE [Concomitant]
     Active Substance: FAMOTIDINE
     Indication: Anti-neutrophil cytoplasmic antibody positive vasculitis
     Dosage: 20 MILLIGRAM, QD
     Dates: start: 202305
  8. ALENDRONATE [Concomitant]
     Active Substance: ALENDRONATE SODIUM
     Indication: Anti-neutrophil cytoplasmic antibody positive vasculitis
     Dosage: 35 MILLIGRAM, QWK
     Route: 048
     Dates: start: 202305

REACTIONS (1)
  - Liver disorder [Recovered/Resolved]

NARRATIVE: CASE EVENT DATE: 20230810
